FAERS Safety Report 11982874 (Version 1)
Quarter: 2016Q1

REPORT INFORMATION
  Report Type: Spontaneous
  Country: None (occurrence: US)
  Receive Date: 20160201
  Receipt Date: 20160201
  Transmission Date: 20160526
  Serious: No
  Sender: FDA-Public Use
  Company Number: US-WATSON-2015-08096

PATIENT
  Sex: Female

DRUGS (1)
  1. LEVETIRACETAM (WATSON LABORATORIES) [Suspect]
     Active Substance: LEVETIRACETAM
     Indication: SEIZURE
     Route: 065

REACTIONS (8)
  - Insomnia [Unknown]
  - Dehydration [None]
  - Palpitations [Unknown]
  - Tooth discolouration [Unknown]
  - Dysuria [Unknown]
  - Headache [Unknown]
  - Muscle disorder [Unknown]
  - Skin haemorrhage [None]
